FAERS Safety Report 17743191 (Version 1)
Quarter: 2020Q2

REPORT INFORMATION
  Report Type: Spontaneous
  Country: IT (occurrence: IT)
  Receive Date: 20200505
  Receipt Date: 20200505
  Transmission Date: 20200714
  Serious: Yes (Other)
  Sender: FDA-Public Use
  Company Number: IT-SUN PHARMACEUTICAL INDUSTRIES LTD-2019RR-236188

PATIENT
  Age: 35 Year
  Sex: Female

DRUGS (7)
  1. GENTAMICIN/BETAMETHASONE [Suspect]
     Active Substance: BETAMETHASONE\GENTAMICIN
     Indication: ARTHROPOD BITE
     Dosage: 3 DOSAGE FORM, DAILY
     Route: 003
     Dates: start: 20191026
  2. AZALIA [Concomitant]
     Indication: ENDOMETRIOSIS
     Dosage: UNK
     Route: 065
  3. AZITHROMYCIN ANHYDROUS. [Suspect]
     Active Substance: AZITHROMYCIN ANHYDROUS
     Indication: ARTHROPOD BITE
     Dosage: 1500 MILLIGRAM, DAILY
     Route: 065
     Dates: start: 20191022, end: 20191025
  4. AUGMENTIN [Suspect]
     Active Substance: AMOXICILLIN\CLAVULANATE POTASSIUM
     Indication: ARTHROPOD BITE
  5. DESOGESTREL [Suspect]
     Active Substance: DESOGESTREL
     Indication: ENDOMETRIOSIS
     Dosage: ()
     Route: 065
  6. AUGMENTIN [Suspect]
     Active Substance: AMOXICILLIN\CLAVULANATE POTASSIUM
     Indication: ARTHROPOD BITE
     Dosage: 3 DOSAGE FORM, DAILY
     Dates: start: 20191026, end: 20191106
  7. AZITHROMYCIN ANHYDROUS. [Suspect]
     Active Substance: AZITHROMYCIN ANHYDROUS
     Indication: ARTHROPOD BITE

REACTIONS (5)
  - Diarrhoea [Not Recovered/Not Resolved]
  - Skin reaction [Unknown]
  - Pruritus [Unknown]
  - Peripheral swelling [Unknown]
  - Dyspepsia [Not Recovered/Not Resolved]

NARRATIVE: CASE EVENT DATE: 20191106
